FAERS Safety Report 14789643 (Version 2)
Quarter: 2018Q2

REPORT INFORMATION
  Report Type: Spontaneous
  Country: ES (occurrence: ES)
  Receive Date: 20180423
  Receipt Date: 20180430
  Transmission Date: 20180711
  Serious: Yes (Hospitalization, Other)
  Sender: FDA-Public Use
  Company Number: ES-AUROBINDO-AUR-APL-2018-021554

PATIENT
  Age: 58 Year
  Sex: Female

DRUGS (2)
  1. LEVOFLOXACIN. [Suspect]
     Active Substance: LEVOFLOXACIN
     Indication: RESPIRATORY TRACT INFECTION
     Dosage: UNK
     Route: 065
  2. CORTICOSTEROID NOS [Suspect]
     Active Substance: CORTICOSTEROID NOS
     Indication: RESPIRATORY TRACT INFECTION
     Dosage: UNK
     Route: 065

REACTIONS (11)
  - Kounis syndrome [Unknown]
  - Electrocardiogram ST segment elevation [Unknown]
  - Anaphylactic reaction [Recovering/Resolving]
  - Hypersensitivity [Unknown]
  - Vasospasm [Recovered/Resolved]
  - Acute myocardial infarction [Unknown]
  - Stent placement [Unknown]
  - Ventricular fibrillation [Unknown]
  - Arteriospasm coronary [Unknown]
  - Hypotension [Unknown]
  - Cardiac arrest [Unknown]
